FAERS Safety Report 7415946-X (Version None)
Quarter: 2011Q2

REPORT INFORMATION
  Report Type: 
  Country: None (occurrence: None)
  Receive Date: 20110414
  Receipt Date: 20110404
  Transmission Date: 20111010
  Serious: Yes (Congenital Anomaly, Other)
  Sender: FDA-Public Use
  Company Number: PHHY2011US28174

PATIENT
  Sex: Female

DRUGS (2)
  1. METHIMAZOLE [Suspect]
     Dosage: UNK UKN, UNK
     Route: 064
  2. PROPYLTHIOURACIL [Suspect]
     Dosage: UNK UKN, UNK
     Route: 064

REACTIONS (6)
  - CHOANAL ATRESIA [None]
  - DYSMORPHISM [None]
  - DRUG EXPOSURE DURING PREGNANCY [None]
  - IRIS COLOBOMA [None]
  - PYELOCALIECTASIS [None]
  - RETINAL COLOBOMA [None]
